FAERS Safety Report 7988807-5 (Version None)
Quarter: 2011Q4

REPORT INFORMATION
  Report Type: 
  Country: None (occurrence: None)
  Receive Date: 20111219
  Receipt Date: 20111206
  Transmission Date: 20120403
  Serious: Yes (Life-Threatening)
  Sender: FDA-Public Use
  Company Number: UA-BAYER-2011-117051

PATIENT
  Age: 67 Year
  Sex: Female
  Weight: 76 kg

DRUGS (1)
  1. ULTRAVIST 150 [Suspect]
     Dosage: DAILY DOSE 1 ML
     Route: 042
     Dates: start: 20111206, end: 20111206

REACTIONS (2)
  - DIZZINESS [None]
  - BLOOD PRESSURE DECREASED [None]
